FAERS Safety Report 4601627-4 (Version None)
Quarter: 2005Q1

REPORT INFORMATION
  Report Type: 
  Country: None (occurrence: None)
  Receive Date: 20050131
  Receipt Date: 20041029
  Transmission Date: 20050727
  Serious: No
  Sender: FDA-Public Use
  Company Number: 200418386US

PATIENT
  Age: 37 Year
  Sex: Female

DRUGS (2)
  1. KETEK [Suspect]
     Indication: BRONCHITIS
  2. KETEK [Suspect]
     Indication: SINUSITIS

REACTIONS (1)
  - INTRAOCULAR PRESSURE INCREASED [None]
